FAERS Safety Report 9893287 (Version 1)
Quarter: 2014Q1

REPORT INFORMATION
  Report Type: Spontaneous
  Country: DE (occurrence: DE)
  Receive Date: 20140213
  Receipt Date: 20140213
  Transmission Date: 20141002
  Serious: Yes (Other)
  Sender: FDA-Public Use
  Company Number: DE-ACCORD-021845

PATIENT
  Age: 71 Year
  Sex: Male

DRUGS (2)
  1. FLUOROURACIL [Suspect]
     Indication: METASTASES TO LIVER
     Dosage: MODIFIED FOLFIRI 14
  2. IRINOTECAN [Suspect]
     Indication: METASTASES TO LIVER
     Dosage: MODIFIED FOLFIRI 14

REACTIONS (2)
  - Renal failure chronic [Unknown]
  - Renal failure acute [Unknown]
